FAERS Safety Report 9790101 (Version 2)
Quarter: 2014Q1

REPORT INFORMATION
  Report Type: Spontaneous
  Country: US (occurrence: US)
  Receive Date: 20131231
  Receipt Date: 20140217
  Transmission Date: 20141002
  Serious: No
  Sender: FDA-Public Use
  Company Number: US-009507513-1312USA008821

PATIENT
  Age: 52 Year
  Sex: Female
  Weight: 82.99 kg

DRUGS (7)
  1. OXYTROL FOR WOMEN [Suspect]
     Indication: POLLAKIURIA
     Dosage: 1 DF, Q4D
     Route: 062
     Dates: start: 20131108, end: 20131130
  2. OXYTROL FOR WOMEN [Suspect]
     Indication: HYPERTONIC BLADDER
  3. SUMATRIPTAN [Concomitant]
     Indication: MIGRAINE
     Dosage: UNK, PRN
  4. BUPROPION HYDROCHLORIDE [Concomitant]
     Indication: HOT FLUSH
     Dosage: 75 MG, QD
  5. EPIPEN [Concomitant]
     Indication: PRODUCT USED FOR UNKNOWN INDICATION
     Dosage: UNK, PRN
  6. PRAVASTATIN SODIUM [Concomitant]
     Indication: BLOOD CHOLESTEROL INCREASED
     Dosage: 40 MG, QD
  7. METRONIDAZOLE [Concomitant]
     Indication: ROSACEA
     Dosage: UNK, UNKNOWN

REACTIONS (4)
  - Pelvic pain [Recovered/Resolved]
  - Pain [Recovered/Resolved]
  - Incorrect drug administration duration [Unknown]
  - Drug ineffective [Unknown]
